FAERS Safety Report 14142012 (Version 1)
Quarter: 2017Q4

REPORT INFORMATION
  Report Type: Spontaneous
  Country: JP (occurrence: JP)
  Receive Date: 20171030
  Receipt Date: 20171030
  Transmission Date: 20180321
  Serious: Yes (Life-Threatening, Hospitalization)
  Sender: FDA-Public Use
  Company Number: JP-PFIZER INC-2017430313

PATIENT
  Age: 83 Year
  Sex: Male
  Weight: 61.5 kg

DRUGS (9)
  1. BASEN [Concomitant]
     Active Substance: VOGLIBOSE
     Dosage: 0.3 MG, 2X/DAY
     Route: 048
     Dates: end: 20170928
  2. PREDNISOLONE. [Concomitant]
     Active Substance: PREDNISOLONE
     Dosage: 2 MG, 1X/DAY
     Route: 048
     Dates: end: 20170928
  3. AMARYL [Concomitant]
     Active Substance: GLIMEPIRIDE
     Dosage: 0.5 MG, 1X/DAY
     Route: 048
     Dates: end: 20170928
  4. ALVESCO 200?G INHALER [Concomitant]
     Dosage: 2 TWICE INHALATION, 1X/DAY
     Route: 055
  5. LIOVEL LD [Concomitant]
     Dosage: 1 TABLET, 1X/DAY
     Route: 048
     Dates: end: 20170928
  6. SPIOLTO RESPIMAT [Concomitant]
     Active Substance: OLODATEROL HYDROCHLORIDE\TIOTROPIUM BROMIDE MONOHYDRATE
     Dosage: 2 TWICE INHALATION, 1X/DAY
     Route: 055
  7. METGLUCO [Concomitant]
     Active Substance: METFORMIN HYDROCHLORIDE
     Dosage: 250 MG, 2X/DAY
     Route: 048
     Dates: end: 20170928
  8. RHEUMATREX [Suspect]
     Active Substance: METHOTREXATE SODIUM
     Indication: RHEUMATOID ARTHRITIS
     Dosage: 6 MG, WEEKLY
     Route: 048
     Dates: start: 20120629, end: 20170926
  9. RIMATIL [Suspect]
     Active Substance: BUCILLAMINE
     Dosage: 100 MG, 2X/DAY
     Route: 048
     Dates: end: 20170926

REACTIONS (4)
  - Asthma [Not Recovered/Not Resolved]
  - Pleural effusion [Not Recovered/Not Resolved]
  - Pneumocystis jirovecii pneumonia [Not Recovered/Not Resolved]
  - Pancytopenia [Not Recovered/Not Resolved]

NARRATIVE: CASE EVENT DATE: 201701
